FAERS Safety Report 6732521-0 (Version None)
Quarter: 2010Q2

REPORT INFORMATION
  Report Type: 
  Country: None (occurrence: None)
  Receive Date: 20100519
  Receipt Date: 20100511
  Transmission Date: 20101027
  Serious: Yes (Hospitalization)
  Sender: FDA-Public Use
  Company Number: US-BAYER-200941133NA

PATIENT
  Age: 25 Year
  Sex: Female
  Weight: 88 kg

DRUGS (1)
  1. MIRENA [Suspect]
     Indication: CONTRACEPTION
     Dosage: CONTINUOUS
     Route: 015
     Dates: start: 20080401

REACTIONS (4)
  - AMENORRHOEA [None]
  - APPENDICITIS [None]
  - HYPOMENORRHOEA [None]
  - POLYCYSTIC OVARIES [None]
